FAERS Safety Report 9804370 (Version 1)
Quarter: 2014Q1

REPORT INFORMATION
  Report Type: Spontaneous
  Country: US (occurrence: None)
  Receive Date: 20140106
  Receipt Date: 20140106
  Transmission Date: 20141002
  Serious: Yes (Other)
  Sender: FDA-Public Use
  Company Number: 2013UC075000346

PATIENT
  Age: 41 Year
  Sex: Female
  Weight: 60 kg

DRUGS (22)
  1. CIMZIA [Suspect]
     Indication: CROHN^S DISEASE
     Dates: start: 20091231
  2. HUMIRA [Suspect]
     Indication: CROHN^S DISEASE
     Route: 058
     Dates: start: 20100415
  3. METHOTREXATE [Suspect]
     Indication: CROHN^S DISEASE
     Route: 058
     Dates: start: 201307
  4. ALIGN [Concomitant]
  5. ASACOL [Concomitant]
  6. FOLIC ACID [Concomitant]
  7. LOMOTIL [Concomitant]
  8. MULTIVITAMINS [Concomitant]
  9. OFLOXACIN [Concomitant]
  10. PAROXETINE [Concomitant]
  11. TYLENOL EXTRA STRENGTH [Concomitant]
  12. VALTREX [Concomitant]
  13. VITAMIN D2 [Concomitant]
  14. MESALAMINE [Concomitant]
  15. FLAGYL [Concomitant]
  16. PREDNISONE [Concomitant]
  17. BUDESONIDE [Concomitant]
  18. AZATHIOPRINE [Concomitant]
  19. 6-MP [Concomitant]
  20. ADALIMUMAB [Concomitant]
  21. ACETAMINOPHEN [Concomitant]
  22. DIPHENOXYLATE/ATROPINE [Concomitant]

REACTIONS (2)
  - Herpes zoster [None]
  - Opportunistic infection [None]
